FAERS Safety Report 6665442-2 (Version None)
Quarter: 2010Q2

REPORT INFORMATION
  Report Type: 
  Country: None (occurrence: None)
  Receive Date: 20100402
  Receipt Date: 20100324
  Transmission Date: 20101027
  Serious: Yes (Other)
  Sender: FDA-Public Use
  Company Number: US-PFIZER INC-2010038567

PATIENT
  Sex: Male
  Weight: 84.354 kg

DRUGS (3)
  1. LIPITOR [Suspect]
     Indication: BLOOD CHOLESTEROL INCREASED
     Dosage: 40 MG, 1X/DAY
     Route: 048
     Dates: start: 20100225, end: 20100324
  2. PLAVIX [Concomitant]
     Dosage: 75 MG, UNK
  3. NEBIVOLOL [Concomitant]
     Dosage: 5 MG, UNK

REACTIONS (4)
  - ARTHRALGIA [None]
  - CARDIAC OPERATION [None]
  - MUSCULOSKELETAL PAIN [None]
  - PAIN IN EXTREMITY [None]
